FAERS Safety Report 10027684 (Version 2)
Quarter: 2014Q1

REPORT INFORMATION
  Report Type: Spontaneous
  Country: US (occurrence: US)
  Receive Date: 20140321
  Receipt Date: 20140321
  Transmission Date: 20141002
  Serious: Yes (Death, Other)
  Sender: FDA-Public Use
  Company Number: US-SA-A03200701954

PATIENT
  Sex: Female

DRUGS (2)
  1. PLAVIX [Suspect]
     Indication: PRODUCT USED FOR UNKNOWN INDICATION
     Dosage: UNIT DOSE: 75 MG
     Route: 048
     Dates: start: 20040323, end: 20040915
  2. ASPIRIN ^BAYER^ [Concomitant]
     Route: 048
     Dates: start: 20040323

REACTIONS (3)
  - Multiple injuries [Unknown]
  - Thrombotic thrombocytopenic purpura [Fatal]
  - Gastrointestinal haemorrhage [Unknown]
